FAERS Safety Report 23638445 (Version 1)
Quarter: 2024Q1

REPORT INFORMATION
  Report Type: Report from Study
  Country: CA (occurrence: CA)
  Receive Date: 20240315
  Receipt Date: 20240315
  Transmission Date: 20240410
  Serious: Yes (Death, Other)
  Sender: FDA-Public Use
  Company Number: CA-GLAXOSMITHKLINE-CA2023AMR134931

PATIENT

DRUGS (1)
  1. BELIMUMAB [Suspect]
     Active Substance: BELIMUMAB
     Indication: Systemic lupus erythematosus
     Dosage: 400 MG, WE
     Route: 058
     Dates: start: 20130913

REACTIONS (5)
  - Death [Fatal]
  - Insomnia [Unknown]
  - Illness [Unknown]
  - Headache [Unknown]
  - Vomiting [Unknown]

NARRATIVE: CASE EVENT DATE: 20231220
